FAERS Safety Report 10762407 (Version 12)
Quarter: 2019Q2

REPORT INFORMATION
  Report Type: Report from Study
  Country: GB (occurrence: GB)
  Receive Date: 20150204
  Receipt Date: 20190521
  Transmission Date: 20190711
  Serious: Yes (Death, Hospitalization, Other)
  Sender: FDA-Public Use
  Company Number: GB-BRISTOL-MYERS SQUIBB COMPANY-BMS-2015-001389

PATIENT
  Age: 82 Year
  Sex: Female

DRUGS (1)
  1. ABATACEPT [Suspect]
     Active Substance: ABATACEPT
     Indication: RHEUMATOID ARTHRITIS
     Dosage: 125 MG, QWK
     Route: 058
     Dates: start: 20140812

REACTIONS (9)
  - Face injury [Unknown]
  - Lung infection [Unknown]
  - Death [Fatal]
  - Shoulder operation [Unknown]
  - Dyspnoea [Unknown]
  - Fall [Unknown]
  - Pain [Unknown]
  - Infection [Unknown]
  - Nerve compression [Unknown]

NARRATIVE: CASE EVENT DATE: 201808
